FAERS Safety Report 7733723-7 (Version None)
Quarter: 2011Q3

REPORT INFORMATION
  Report Type: 
  Country: None (occurrence: None)
  Receive Date: 20110902
  Receipt Date: 20110902
  Transmission Date: 20111222
  Serious: Yes (Disabling)
  Sender: FDA-Public Use
  Company Number: None

PATIENT
  Sex: Female
  Weight: 65.7716 kg

DRUGS (1)
  1. OFLOXACIN [Suspect]
     Indication: EYE INFECTION
     Dosage: 1 DROP IN LEFT EYE EVERY 2 HOURS PRN OPTHALMIC 1 DROP IN LEFT EYE AD OPTHALMIC
     Route: 047
     Dates: start: 20101005

REACTIONS (2)
  - VISUAL IMPAIRMENT [None]
  - DIPLOPIA [None]
